FAERS Safety Report 6914344-2 (Version None)
Quarter: 2010Q3

REPORT INFORMATION
  Report Type: 
  Country: None (occurrence: None)
  Receive Date: 20100809
  Receipt Date: 20100726
  Transmission Date: 20110219
  Serious: Yes (Hospitalization, Disabling)
  Sender: FDA-Public Use
  Company Number: FR-AMGEN-QUU429344

PATIENT
  Age: 78 Year
  Sex: Female

DRUGS (5)
  1. ENBREL [Suspect]
     Indication: PSORIASIS
     Route: 058
     Dates: start: 20010101, end: 20090101
  2. ENBREL [Suspect]
     Indication: PSORIATIC ARTHROPATHY
     Route: 058
     Dates: start: 20090101, end: 20100407
  3. HUMIRA [Suspect]
     Indication: PSORIASIS
     Dosage: ONE DOSE OF 80 MG
     Route: 058
     Dates: start: 20100421, end: 20100421
  4. HUMIRA [Suspect]
     Indication: PSORIATIC ARTHROPATHY
  5. CORTICOSTEROID NOS [Suspect]
     Indication: PRODUCT USED FOR UNKNOWN INDICATION
     Dates: start: 20090901

REACTIONS (9)
  - CUTANEOUS VASCULITIS [None]
  - DERMATITIS ALLERGIC [None]
  - DERMATITIS EXFOLIATIVE [None]
  - DERMATITIS PSORIASIFORM [None]
  - DRUG INEFFECTIVE [None]
  - ECZEMA [None]
  - EOSINOPHILIA [None]
  - PAIN [None]
  - PYREXIA [None]
